FAERS Safety Report 11018286 (Version 2)
Quarter: 2015Q2

REPORT INFORMATION
  Report Type: Spontaneous
  Country: US (occurrence: US)
  Receive Date: 20150412
  Receipt Date: 20150524
  Transmission Date: 20150821
  Serious: No
  Sender: FDA-Public Use
  Company Number: US-JNJFOC-20121114173

PATIENT

DRUGS (6)
  1. MESNA. [Suspect]
     Active Substance: MESNA
     Indication: NEOPLASM MALIGNANT
     Route: 065
  2. ANZEMET [Concomitant]
     Active Substance: DOLASETRON MESYLATE
     Dosage: 60 MIN PRIOR TO CHEMOTHERAPY
     Route: 048
  3. IFOSFAMIDE. [Suspect]
     Active Substance: IFOSFAMIDE
     Indication: NEOPLASM MALIGNANT
     Route: 065
  4. CYCLOPHOSPHAMIDE. [Suspect]
     Active Substance: CYCLOPHOSPHAMIDE
     Indication: NEOPLASM MALIGNANT
     Route: 065
  5. DEXAMETHASONE. [Concomitant]
     Active Substance: DEXAMETHASONE
     Dosage: 60 MIN PRIOR TO CHEMOTHERAPY
     Route: 048
  6. DOXORUBICIN HYDROCHLORIDE. [Suspect]
     Active Substance: DOXORUBICIN HYDROCHLORIDE
     Indication: NEOPLASM MALIGNANT
     Route: 042

REACTIONS (1)
  - Vomiting [Unknown]
